FAERS Safety Report 25321422 (Version 2)
Quarter: 2025Q2

REPORT INFORMATION
  Report Type: Spontaneous
  Country: JP (occurrence: JP)
  Receive Date: 20250516
  Receipt Date: 20250603
  Transmission Date: 20250717
  Serious: Yes (Other)
  Sender: TAKEDA
  Company Number: JP-TAKEDA-2024TJP016972

PATIENT
  Age: 85 Year
  Sex: Male

DRUGS (2)
  1. FRUZAQLA [Suspect]
     Active Substance: FRUQUINTINIB
     Indication: Colorectal cancer recurrent
     Dosage: 4 MILLIGRAM, QD
     Dates: start: 20241122, end: 20241206
  2. FRUZAQLA [Suspect]
     Active Substance: FRUQUINTINIB
     Dosage: 4 MILLIGRAM, QD
     Dates: end: 20250207

REACTIONS (9)
  - Colorectal cancer recurrent [Unknown]
  - Protein urine present [Unknown]
  - Dyspnoea exertional [Unknown]
  - Eye pain [Recovering/Resolving]
  - Abdominal pain [Unknown]
  - Balance disorder [Unknown]
  - Hypertension [Recovering/Resolving]
  - Stomatitis [Unknown]
  - Palmar-plantar erythrodysaesthesia syndrome [Unknown]

NARRATIVE: CASE EVENT DATE: 20241126
